FAERS Safety Report 22082285 (Version 1)
Quarter: 2023Q1

REPORT INFORMATION
  Report Type: Spontaneous
  Country: PL (occurrence: PL)
  Receive Date: 20230310
  Receipt Date: 20230310
  Transmission Date: 20230418
  Serious: Yes (Other)
  Sender: FDA-Public Use
  Company Number: PL-BRISTOL-MYERS SQUIBB COMPANY-2023-033938

PATIENT
  Age: 48 Year
  Sex: Male

DRUGS (1)
  1. IPILIMUMAB [Suspect]
     Active Substance: IPILIMUMAB
     Indication: Malignant melanoma
     Dosage: DOSE : UNAV;     FREQ : UNAV

REACTIONS (7)
  - Alopecia [Unknown]
  - Asthenia [Unknown]
  - Weight decreased [Unknown]
  - Altered state of consciousness [Unknown]
  - Pyrexia [Unknown]
  - Heart rate increased [Unknown]
  - Hypophysitis [Unknown]
